FAERS Safety Report 8469353-1 (Version None)
Quarter: 2012Q2

REPORT INFORMATION
  Report Type: 
  Country: None (occurrence: None)
  Receive Date: 20120621
  Receipt Date: 20120621
  Transmission Date: 20120825
  Serious: No
  Sender: FDA-Public Use
  Company Number: None

PATIENT
  Age: 77 Year
  Sex: Female
  Weight: 59.8748 kg

DRUGS (1)
  1. COPAXONE [Suspect]
     Indication: MULTIPLE SCLEROSIS
     Dosage: 20 MG DAILY SUBQ.
     Route: 058

REACTIONS (5)
  - DYSPNOEA [None]
  - CHILLS [None]
  - MALAISE [None]
  - PARAESTHESIA [None]
  - CHEST DISCOMFORT [None]
